FAERS Safety Report 8827361 (Version 1)
Quarter: 2012Q4

REPORT INFORMATION
  Report Type: 
  Country: JP (occurrence: JP)
  Receive Date: 20121005
  Receipt Date: 20121005
  Transmission Date: 20130627
  Serious: Yes (Other)
  Sender: FDA-Public Use
  Company Number: JP-ASTRAZENECA-2012SE75184

PATIENT
  Age: 12 Year
  Sex: Male
  Weight: 41 kg

DRUGS (6)
  1. XYLOCAINE [Suspect]
     Indication: EPIDURAL ANAESTHESIA
     Dosage: Dose unknown
     Route: 008
  2. DIPRIVAN [Suspect]
     Indication: INDUCTION OF ANAESTHESIA
     Dosage: Dose unknown
     Route: 042
  3. FENTANYL [Concomitant]
     Indication: INDUCTION OF ANAESTHESIA
     Dosage: Dose unknown
     Route: 065
  4. ROCURONIUM BROMIDE [Concomitant]
     Dosage: Dose unknown
     Route: 065
  5. SEVOFLURANE [Concomitant]
     Indication: MAINTENANCE OF ANAESTHESIA
     Dosage: Dose unknown
     Route: 065
  6. REMIFENTANIL HYDROCHLORIDE [Concomitant]
     Indication: MAINTENANCE OF ANAESTHESIA
     Dosage: Dose unknown
     Route: 065

REACTIONS (1)
  - Non-cardiogenic pulmonary oedema [Recovering/Resolving]
